FAERS Safety Report 4666207-3 (Version None)
Quarter: 2005Q2

REPORT INFORMATION
  Report Type: 
  Country: None (occurrence: None)
  Receive Date: 20050518
  Receipt Date: 20050502
  Transmission Date: 20051028
  Serious: Yes (Disabling)
  Sender: FDA-Public Use
  Company Number: 8010399

PATIENT
  Age: 19 Year
  Sex: Female

DRUGS (4)
  1. KEPPRA [Suspect]
     Indication: EPILEPSY
     Dosage: 500 MG 2/D PO
     Route: 048
     Dates: start: 20050201
  2. CISPLATIN [Suspect]
     Dosage: 26 MG /D IV
     Route: 042
     Dates: start: 20041001, end: 20041210
  3. BLEOMYCIN [Suspect]
     Dosage: 30 MG /D IV
     Route: 042
     Dates: start: 20041001, end: 20041213
  4. ETOPOSIDE [Suspect]
     Dosage: 126 MG /D IV
     Route: 042
     Dates: start: 20041001, end: 20041213

REACTIONS (8)
  - CONVULSION [None]
  - DEHYDRATION [None]
  - DIALYSIS [None]
  - HAEMOLYTIC URAEMIC SYNDROME [None]
  - HYPERTENSION [None]
  - RENAL FAILURE ACUTE [None]
  - THROMBOCYTOPENIA [None]
  - VOMITING [None]
